FAERS Safety Report 4394607-8 (Version None)
Quarter: 2004Q3

REPORT INFORMATION
  Report Type: 
  Country: None (occurrence: None)
  Receive Date: 20040706
  Receipt Date: 20040623
  Transmission Date: 20050211
  Serious: Yes (Disabling, Other)
  Sender: FDA-Public Use
  Company Number: 2004042424

PATIENT
  Age: 67 Year
  Sex: Female
  Weight: 74.8435 kg

DRUGS (4)
  1. ACCUPRIL [Suspect]
     Indication: HYPERTENSION
     Dosage: 20 MG (20 MG, 1 IN 1 D), ORAL
     Route: 048
     Dates: start: 19980101
  2. ALENDRONATE SODIUM [Concomitant]
  3. SIMVASTATIN [Concomitant]
  4. EZETIMIBE (EZETIMIBE) [Concomitant]

REACTIONS (15)
  - ALOPECIA [None]
  - CONSTIPATION [None]
  - COUGH [None]
  - DIZZINESS [None]
  - DRY MOUTH [None]
  - DRY THROAT [None]
  - FLATULENCE [None]
  - HAEMORRHOID OPERATION [None]
  - HEAD DISCOMFORT [None]
  - MUSCLE CRAMP [None]
  - NASAL POLYPS [None]
  - NAUSEA [None]
  - OSTEOPOROSIS [None]
  - SKIN FISSURES [None]
  - VERTIGO [None]
